FAERS Safety Report 6429466-2 (Version None)
Quarter: 2009Q4

REPORT INFORMATION
  Report Type: 
  Country: None (occurrence: None)
  Receive Date: 20091105
  Receipt Date: 20090901
  Transmission Date: 20100525
  Serious: No
  Sender: FDA-Public Use
  Company Number: US-ABBOTT-09P-163-0595040-00

PATIENT
  Sex: Male
  Weight: 72.64 kg

DRUGS (3)
  1. KALETRA [Suspect]
     Indication: HIV INFECTION
     Dosage: 200/50 MG PER TABLET
  2. LIPITOR [Concomitant]
     Indication: BLOOD CHOLESTEROL INCREASED
  3. EPZICOM [Concomitant]
     Indication: HIV INFECTION

REACTIONS (3)
  - DRUG DOSE OMISSION [None]
  - MUSCLE SPASMS [None]
  - MUSCLE TIGHTNESS [None]
